FAERS Safety Report 9196014 (Version 1)
Quarter: 2013Q1

REPORT INFORMATION
  Report Type: Spontaneous
  Country: US (occurrence: None)
  Receive Date: 20120705
  Receipt Date: 20120705
  Transmission Date: 20140127
  Serious: Yes (Hospitalization)
  Sender: FDA-Public Use
  Company Number: US-CYPR-2012-000029

PATIENT
  Age: 68 Year
  Sex: Male
  Weight: 70.76 kg

DRUGS (9)
  1. CLOPIDOGREL [Suspect]
     Indication: ANTIPLATELET THERAPY
     Route: 048
     Dates: start: 20110331, end: 20120415
  2. ASPIRIN [Suspect]
     Indication: CORONARY ARTERY DISEASE
     Route: 048
     Dates: start: 20100417, end: 20120417
  3. METOPROLOL [Concomitant]
  4. NIFEDIPINE [Concomitant]
  5. PERCOCET [Concomitant]
  6. LIPITOR [Concomitant]
  7. PROTONIX [Concomitant]
  8. FLOMAX [Concomitant]
  9. CYPHER STENT [Suspect]

REACTIONS (1)
  - Angina pectoris [None]
